FAERS Safety Report 4887716-8 (Version None)
Quarter: 2006Q1

REPORT INFORMATION
  Report Type: 
  Country: None (occurrence: None)
  Receive Date: 20060118
  Receipt Date: 20060112
  Transmission Date: 20060701
  Serious: Yes (Life-Threatening)
  Sender: FDA-Public Use
  Company Number: 200610130GDS

PATIENT
  Age: 57 Year
  Sex: Male

DRUGS (12)
  1. CIPROFLOXACIN [Suspect]
     Dosage: BID, INTRAVENOUS
     Route: 042
     Dates: start: 20051215
  2. CIPROFLOXACIN [Suspect]
     Dosage: 1000 MG, TOTAL DAILY,
     Dates: start: 20051215, end: 20060107
  3. CLINDAMYCIN HCL [Suspect]
     Dosage: 1200 MG, TOTAL DAILY,
     Dates: start: 20051215, end: 20060108
  4. ATENOLOL [Concomitant]
  5. VERAPAMIL [Concomitant]
  6. LIPITOR [Concomitant]
  7. GLYBURIDE [Concomitant]
  8. METFORMIN [Concomitant]
  9. GABAPENTIN [Concomitant]
  10. CELEXA [Concomitant]
  11. ZOPICLONE [Concomitant]
  12. EMTEC-30 [Concomitant]

REACTIONS (2)
  - PSYCHOTIC DISORDER [None]
  - SUICIDAL IDEATION [None]
